FAERS Safety Report 5048516-1 (Version None)
Quarter: 2006Q3

REPORT INFORMATION
  Report Type: 
  Country: None (occurrence: None)
  Receive Date: 20060712
  Receipt Date: 20060630
  Transmission Date: 20061208
  Serious: Yes (Other)
  Sender: FDA-Public Use
  Company Number: 2006AC01221

PATIENT
  Age: 44 Year
  Sex: Female
  Weight: 101 kg

DRUGS (2)
  1. SEROQUEL [Suspect]
     Indication: SCHIZOAFFECTIVE DISORDER
     Route: 048
     Dates: start: 20021110
  2. CAMCOLIT [Concomitant]
     Indication: SCHIZOAFFECTIVE DISORDER
     Route: 048
     Dates: start: 20020202

REACTIONS (4)
  - DIABETES MELLITUS [None]
  - DYSLIPIDAEMIA [None]
  - HYPERTENSION [None]
  - OBESITY [None]
